FAERS Safety Report 8612797-5 (Version None)
Quarter: 2012Q3

REPORT INFORMATION
  Report Type: 
  Country: None (occurrence: None)
  Receive Date: 20120822
  Receipt Date: 20120229
  Transmission Date: 20120928
  Serious: No
  Sender: FDA-Public Use
  Company Number: US-ASTRAZENECA-2009SE27031

PATIENT
  Age: 69 Year
  Sex: Female
  Weight: 63.5 kg

DRUGS (5)
  1. SYMBICORT [Suspect]
     Indication: CHRONIC OBSTRUCTIVE PULMONARY DISEASE
     Dosage: 160/4.5, 2 PUFFS BID
     Route: 055
     Dates: start: 20090401, end: 20090401
  2. ALBUTEROL [Concomitant]
  3. SYMBICORT [Suspect]
     Dosage: 160/4.5, 2 PUFFS ONCE A DAY
     Route: 055
     Dates: start: 20090401
  4. ADVIL [Concomitant]
  5. NEXIUM [Suspect]
     Route: 048

REACTIONS (4)
  - RESPIRATORY DISORDER [None]
  - FEELING JITTERY [None]
  - HEADACHE [None]
  - DIVERTICULITIS [None]
